FAERS Safety Report 13406258 (Version 1)
Quarter: 2017Q2

REPORT INFORMATION
  Report Type: Spontaneous
  Country: DE (occurrence: DE)
  Receive Date: 20170405
  Receipt Date: 20170405
  Transmission Date: 20170830
  Serious: Yes (Death, Congenital Anomaly, Other)
  Sender: FDA-Public Use
  Company Number: DE-IPCA LABORATORIES LIMITED-IPC201703-000332

PATIENT
  Age: 4 Day

DRUGS (4)
  1. ESCITALOPRAM [Suspect]
     Active Substance: ESCITALOPRAM OXALATE
  2. ONDANSETRON [Suspect]
     Active Substance: ONDANSETRON
  3. SERTRALINE [Suspect]
     Active Substance: SERTRALINE HYDROCHLORIDE
  4. PROGESTERONE. [Suspect]
     Active Substance: PROGESTERONE

REACTIONS (4)
  - Multiple organ dysfunction syndrome [Fatal]
  - Foetal exposure during pregnancy [Unknown]
  - Human herpesvirus 6 infection [Unknown]
  - Congestive cardiomyopathy [Fatal]
